FAERS Safety Report 9181077 (Version 1)
Quarter: 2013Q1

REPORT INFORMATION
  Report Type: Spontaneous
  Country: US (occurrence: US)
  Receive Date: 20130322
  Receipt Date: 20130322
  Transmission Date: 20140127
  Serious: No
  Sender: FDA-Public Use
  Company Number: US-MYLANLABS-2012S1002539

PATIENT
  Age: 58 Year
  Sex: Female

DRUGS (4)
  1. EMSAM [Suspect]
     Indication: BIPOLAR DISORDER
     Dosage: CHANGES EVERY DAY
     Route: 062
     Dates: start: 201112
  2. SEROQUEL [Concomitant]
  3. LITHIUM [Concomitant]
  4. CEFPROZIL [Concomitant]

REACTIONS (2)
  - Drug effect decreased [Recovering/Resolving]
  - Mania [Recovering/Resolving]
